FAERS Safety Report 18571928 (Version 1)
Quarter: 2020Q4

REPORT INFORMATION
  Report Type: Spontaneous
  Country: US (occurrence: US)
  Receive Date: 20201202
  Receipt Date: 20201202
  Transmission Date: 20210114
  Serious: Yes (Death, Other)
  Sender: FDA-Public Use
  Company Number: US-TEVA-2020-US-1854531

PATIENT
  Age: 63 Year
  Sex: Female

DRUGS (1)
  1. FENTANYL. [Suspect]
     Active Substance: FENTANYL
     Indication: PAIN
     Route: 065

REACTIONS (6)
  - Death [Fatal]
  - Drug dependence [Unknown]
  - Bedridden [Unknown]
  - Pain [Unknown]
  - Withdrawal syndrome [Unknown]
  - Abnormal behaviour [Unknown]
